FAERS Safety Report 18360250 (Version 3)
Quarter: 2020Q4

REPORT INFORMATION
  Report Type: Report from Study
  Country: None (occurrence: US)
  Receive Date: 20201008
  Receipt Date: 20201102
  Transmission Date: 20210114
  Serious: No
  Sender: FDA-Public Use
  Company Number: US-BIOVITRUM-2020US5258

PATIENT
  Age: 9 Month
  Sex: Male

DRUGS (5)
  1. KINERET [Suspect]
     Active Substance: ANAKINRA
     Indication: STILL^S DISEASE
  2. FAMOTIDINE. [Concomitant]
     Active Substance: FAMOTIDINE
  3. PEPCID [Concomitant]
     Active Substance: FAMOTIDINE
  4. PREDNISOLONE. [Concomitant]
     Active Substance: PREDNISOLONE
  5. KINERET [Suspect]
     Active Substance: ANAKINRA
     Indication: JUVENILE IDIOPATHIC ARTHRITIS
     Route: 058
     Dates: start: 20200919

REACTIONS (7)
  - Off label use [Not Recovered/Not Resolved]
  - Injection site swelling [Recovered/Resolved]
  - Ear infection [Unknown]
  - Contusion [Unknown]
  - Injection site discolouration [Unknown]
  - Injection site erythema [Recovered/Resolved]
  - Diarrhoea [Unknown]

NARRATIVE: CASE EVENT DATE: 20200919
